FAERS Safety Report 9403623 (Version 1)
Quarter: 2013Q3

REPORT INFORMATION
  Report Type: Report from Study
  Country: CA (occurrence: CA)
  Receive Date: 20130717
  Receipt Date: 20130717
  Transmission Date: 20140515
  Serious: Yes (Other)
  Sender: FDA-Public Use
  Company Number: CA-ROCHE-1248293

PATIENT
  Sex: Female

DRUGS (4)
  1. LUCENTIS [Suspect]
     Indication: DIABETIC RETINAL OEDEMA
     Route: 050
  2. LUCENTIS [Suspect]
     Route: 050
     Dates: start: 201211
  3. LUCENTIS [Suspect]
     Route: 050
     Dates: start: 201212
  4. LUCENTIS [Suspect]
     Route: 050
     Dates: start: 201301

REACTIONS (3)
  - Amblyopia [Unknown]
  - Eye swelling [Unknown]
  - Blindness unilateral [Unknown]
